FAERS Safety Report 5411246-8 (Version None)
Quarter: 2007Q3

REPORT INFORMATION
  Report Type: 
  Country: None (occurrence: None)
  Receive Date: 20070810
  Receipt Date: 20070809
  Transmission Date: 20080115
  Serious: Yes (Death, Life-Threatening, Hospitalization, Other)
  Sender: FDA-Public Use
  Company Number: B0482863A

PATIENT
  Age: 35 Year
  Sex: Female

DRUGS (2)
  1. AUGMENTIN '125' [Suspect]
     Indication: TONSILLITIS
     Dosage: 500MG TWICE PER DAY
     Route: 048
     Dates: start: 20070726, end: 20070727
  2. ARSUMAX [Concomitant]
     Indication: MALARIA
     Route: 065
     Dates: start: 20070723, end: 20070726

REACTIONS (5)
  - DEATH [None]
  - DERMATITIS EXFOLIATIVE [None]
  - PRURITUS [None]
  - THERMAL BURN [None]
  - TOXIC EPIDERMAL NECROLYSIS [None]
